FAERS Safety Report 9296071 (Version 1)
Quarter: 2013Q2

REPORT INFORMATION
  Report Type: Spontaneous
  Country: US (occurrence: US)
  Receive Date: 20130517
  Receipt Date: 20130517
  Transmission Date: 20140414
  Serious: Yes (Death)
  Sender: FDA-Public Use
  Company Number: US-009507513-1305USA009810

PATIENT
  Sex: 0

DRUGS (1)
  1. NOXAFIL [Suspect]
     Route: 048

REACTIONS (1)
  - Death [Fatal]
